FAERS Safety Report 25729804 (Version 1)
Quarter: 2025Q3

REPORT INFORMATION
  Report Type: Spontaneous
  Country: US (occurrence: US)
  Receive Date: 20250827
  Receipt Date: 20250827
  Transmission Date: 20251021
  Serious: No
  Sender: UCB
  Company Number: US-UCBSA-2025034157

PATIENT

DRUGS (1)
  1. FINTEPLA [Interacting]
     Active Substance: FENFLURAMINE
     Indication: Epilepsy

REACTIONS (1)
  - Drug interaction [Unknown]
